FAERS Safety Report 20918622 (Version 1)
Quarter: 2022Q2

REPORT INFORMATION
  Report Type: Spontaneous
  Country: US (occurrence: US)
  Receive Date: 20220606
  Receipt Date: 20220606
  Transmission Date: 20220720
  Serious: No
  Sender: FDA-Public Use
  Company Number: US-TERSERA THERAPEUTICS LLC-2022TRS001298

PATIENT

DRUGS (2)
  1. ZOLADEX [Suspect]
     Active Substance: GOSERELIN ACETATE
     Indication: Breast cancer stage IV
     Dosage: UNK
     Route: 065
     Dates: start: 2019, end: 2020
  2. ZOLADEX [Suspect]
     Active Substance: GOSERELIN ACETATE
     Indication: Breast cancer stage IV
     Dosage: UNK
     Route: 065

REACTIONS (4)
  - Sleep disorder [Unknown]
  - Hot flush [Unknown]
  - Weight increased [Unknown]
  - Depression [Unknown]
